FAERS Safety Report 15961243 (Version 1)
Quarter: 2019Q1

REPORT INFORMATION
  Report Type: Spontaneous
  Country: US (occurrence: US)
  Receive Date: 20190214
  Receipt Date: 20190214
  Transmission Date: 20190417
  Serious: No
  Sender: FDA-Public Use
  Company Number: US-009507513-1902USA002019

PATIENT
  Age: 3 Year
  Sex: Female

DRUGS (4)
  1. ASMANEX [Suspect]
     Active Substance: MOMETASONE FUROATE
     Indication: SEASONAL ALLERGY
  2. PROVENTIL [Suspect]
     Active Substance: ALBUTEROL
     Indication: ASTHMA
     Dosage: UNK, DAILY IN THE SPRING
  3. PROVENTIL [Suspect]
     Active Substance: ALBUTEROL
     Indication: SEASONAL ALLERGY
  4. ASMANEX [Suspect]
     Active Substance: MOMETASONE FUROATE
     Indication: PROPHYLAXIS
     Dosage: UNK, EVERYDAY / DAILY IN THE SPRING

REACTIONS (3)
  - Product use in unapproved indication [Unknown]
  - Product prescribing error [Unknown]
  - Product use issue [Unknown]
